FAERS Safety Report 9667396 (Version 4)
Quarter: 2014Q2

REPORT INFORMATION
  Report Type: Spontaneous
  Country: US (occurrence: US)
  Receive Date: 20131104
  Receipt Date: 20140604
  Transmission Date: 20141212
  Serious: Yes (Hospitalization)
  Sender: FDA-Public Use
  Company Number: US-B.I. PHARMACEUTICALS,INC./RIDGEFIELD-2013-BI-34336BP

PATIENT
  Age: 54 Year
  Sex: Female
  Weight: 65.77 kg

DRUGS (27)
  1. PRADAXA [Suspect]
     Indication: ANTICOAGULANT THERAPY
     Dosage: 300 MG
     Route: 048
     Dates: start: 20120328, end: 20120723
  2. KLONOPIN [Concomitant]
     Dosage: 0.5 MG
     Route: 048
     Dates: start: 2011
  3. KLONOPIN [Concomitant]
     Dosage: 2 MG
     Route: 048
     Dates: start: 2011
  4. LAMICTAL [Concomitant]
     Dosage: 50 MG
     Route: 048
     Dates: start: 2011
  5. PROTONIX [Concomitant]
     Dosage: 40 MG
     Route: 048
     Dates: start: 2011
  6. SEROQUEL [Concomitant]
     Dosage: 25 MG
     Route: 048
     Dates: start: 2011
  7. SINGULAIR [Concomitant]
     Dosage: 10 MG
     Route: 048
     Dates: start: 2011
  8. HYDROCORTISONE [Concomitant]
     Route: 061
  9. ROBITUSSIN DM [Concomitant]
     Route: 048
  10. COLACE [Concomitant]
     Dosage: 200 MG
     Route: 048
  11. GABAPENTIN [Concomitant]
     Dosage: 900 MG
     Route: 048
  12. ALBUTEROL SULFATE [Concomitant]
     Route: 055
  13. BENADRYL [Concomitant]
     Route: 048
  14. SENOKOT [Concomitant]
     Dosage: 17.2 MG
     Route: 048
  15. TYLEONOL [Concomitant]
     Route: 048
  16. VENTOLIN HFA [Concomitant]
     Route: 055
  17. ZOFRAN [Concomitant]
     Route: 048
  18. SIMETHICONE [Concomitant]
     Dosage: 240 MG
     Route: 048
  19. SPIRIVA HANDIHALER [Concomitant]
     Dosage: 18 MCG
     Route: 048
  20. AMBIEN [Concomitant]
     Dosage: 10 MG
     Route: 048
  21. MYCOLOG [Concomitant]
     Route: 065
  22. CALMOSEPTINE [Concomitant]
     Route: 065
  23. MORPHINE [Concomitant]
     Dosage: 120 MG
     Route: 048
  24. DALIRESP [Concomitant]
     Dosage: 500 MCG
     Route: 048
  25. TIZANIDINE [Concomitant]
     Route: 048
  26. DUODERM [Concomitant]
     Route: 061
  27. ADVAIR [Concomitant]
     Dosage: 1000 MCG
     Route: 055

REACTIONS (2)
  - Gastrointestinal haemorrhage [Unknown]
  - Anaemia [Unknown]
